FAERS Safety Report 5505790-2 (Version None)
Quarter: 2007Q4

REPORT INFORMATION
  Report Type: 
  Country: None (occurrence: None)
  Receive Date: 20071102
  Receipt Date: 20071029
  Transmission Date: 20080405
  Serious: Yes (Other)
  Sender: FDA-Public Use
  Company Number: US-ROXANE LABORATORIES, INC-2007-BP-23480RO

PATIENT
  Age: 10 Year
  Sex: Male

DRUGS (6)
  1. PREDNISONE [Suspect]
  2. AMLODIPINE [Suspect]
  3. CYCLOSPORINE [Suspect]
  4. AMPHOTERICIN B [Suspect]
     Route: 055
  5. CLONIDINE [Suspect]
  6. PENTAMIDINE ISETHIONATE [Suspect]

REACTIONS (2)
  - MUCOSAL INFLAMMATION [None]
  - POLYP [None]
